APPROVED DRUG PRODUCT: PHENYLEPHRINE HYDROCHLORIDE
Active Ingredient: PHENYLEPHRINE HYDROCHLORIDE
Strength: 100MG/10ML (10MG/ML)
Dosage Form/Route: SOLUTION;INTRAVENOUS
Application: A211078 | Product #002 | TE Code: AP1
Applicant: AMNEAL EU LTD
Approved: Jul 19, 2018 | RLD: No | RS: No | Type: RX